FAERS Safety Report 5999935-8 (Version None)
Quarter: 2008Q4

REPORT INFORMATION
  Report Type: 
  Country: None (occurrence: None)
  Receive Date: 20081215
  Receipt Date: 20081206
  Transmission Date: 20090506
  Serious: Yes (Other)
  Sender: FDA-Public Use
  Company Number: PHHY2008MX31046

PATIENT
  Age: 70 Year
  Sex: Female

DRUGS (2)
  1. STALEVO 100 [Suspect]
     Dosage: 3 TABS(L100/C25/E200 MG)/DAY
     Route: 048
     Dates: start: 20060101
  2. STALEVO 100 [Suspect]
     Dosage: 2 TABS (L100/C25/E200 MG)/DAY
     Route: 048
     Dates: start: 20081001

REACTIONS (2)
  - DYSKINESIA [None]
  - INCOHERENT [None]
